FAERS Safety Report 10652985 (Version 1)
Quarter: 2014Q4

REPORT INFORMATION
  Report Type: Spontaneous
  Country: CN (occurrence: CN)
  Receive Date: 20141215
  Receipt Date: 20141215
  Transmission Date: 20150529
  Serious: Yes (Other)
  Sender: FDA-Public Use
  Company Number: CN-B.I. PHARMACEUTICALS,INC./RIDGEFIELD-2014-BI-60495YA

PATIENT
  Age: 28 Year
  Sex: Male
  Weight: 73 kg

DRUGS (4)
  1. HARNAL [Suspect]
     Active Substance: TAMSULOSIN HYDROCHLORIDE
     Indication: SCROTAL VARICOSE VEINS
     Dosage: FORMULATION: MODIFIED-RELEASE CAPSULE, HARDGELATIN; DOSE PER APPLICATION AND DAILY DOSE:1 DF (PARTIC
     Route: 048
     Dates: start: 20140109, end: 20140111
  2. CEFACLOR. [Concomitant]
     Active Substance: CEFACLOR
     Indication: PRODUCT USED FOR UNKNOWN INDICATION
     Route: 065
  3. HARNAL [Suspect]
     Active Substance: TAMSULOSIN HYDROCHLORIDE
     Indication: VARICOCELE
  4. AESCUVEN FORTE [Concomitant]
     Indication: PRODUCT USED FOR UNKNOWN INDICATION
     Route: 065

REACTIONS (1)
  - Haematuria [Not Recovered/Not Resolved]

NARRATIVE: CASE EVENT DATE: 20140113
